FAERS Safety Report 23033583 (Version 1)
Quarter: 2023Q4

REPORT INFORMATION
  Report Type: Report from Study
  Country: US (occurrence: None)
  Receive Date: 20231005
  Receipt Date: 20231005
  Transmission Date: 20240110
  Serious: Yes (Other)
  Sender: FDA-Public Use
  Company Number: 2023A221028

PATIENT
  Sex: Male
  Weight: 98.9 kg

DRUGS (1)
  1. FASENRA [Suspect]
     Active Substance: BENRALIZUMAB
     Indication: Asthma
     Dosage: AT WEEKS 0, 4, AND 8 FOLLOWED BY EVERY 8 WEEKS THEREAFTER
     Route: 058
     Dates: start: 20230728

REACTIONS (1)
  - Guillain-Barre syndrome [Unknown]
